FAERS Safety Report 12937663 (Version 1)
Quarter: 2016Q4

REPORT INFORMATION
  Report Type: Spontaneous
  Country: CN (occurrence: CN)
  Receive Date: 20161114
  Receipt Date: 20161114
  Transmission Date: 20170207
  Serious: Yes (Hospitalization, Other)
  Sender: FDA-Public Use
  Company Number: CN-MYLANLABS-2016M1048625

PATIENT

DRUGS (9)
  1. DEXMEDETOMIDINE. [Suspect]
     Active Substance: DEXMEDETOMIDINE
     Dosage: CONTINUOUS INFUSION AT 0.4MICG/KG/H;INCREASED TO 0.7MICG/KG/H POSTDELIVERY
     Route: 064
  2. DEXMEDETOMIDINE. [Suspect]
     Active Substance: DEXMEDETOMIDINE
     Dosage: 1MICG/KG OVER 10MINUTES;CONTINUOUS INFUSION AT 0.4MICG/KG/H;INCREASED TO 0.7MICG/KG/H POSTDELIVERY
     Route: 064
  3. BUPIVACAINE. [Concomitant]
     Active Substance: BUPIVACAINE
     Indication: EPIDURAL ANAESTHESIA
     Dosage: 11MG 0.5%;ISOBARIC
     Route: 064
  4. PROPYLTHIOURACIL. [Concomitant]
     Active Substance: PROPYLTHIOURACIL
     Indication: HYPERTHYROIDISM
     Dosage: 150MG 1 HOUR BEFORE SURGERY; IN THE PICU 100 MG 8-HOURLY
     Route: 064
  5. PROPYLTHIOURACIL. [Concomitant]
     Active Substance: PROPYLTHIOURACIL
     Dosage: IN THE PICU 100 MG 8-HOURLY
     Route: 064
  6. PROPRANOLOL [Concomitant]
     Active Substance: PROPRANOLOL\PROPRANOLOL HYDROCHLORIDE
     Route: 064
  7. DEXMEDETOMIDINE. [Suspect]
     Active Substance: DEXMEDETOMIDINE
     Dosage: INCREASED TO 0.7MICG/KG/H POSTDELIVERY;IN PICU CONTINUALLY INFUSED RANGING 0.2 TO 0.5MICG/KG/H
     Route: 064
  8. PROPRANOLOL [Concomitant]
     Active Substance: PROPRANOLOL\PROPRANOLOL HYDROCHLORIDE
     Indication: HYPERTHYROIDISM
     Dosage: 20MG 1 HOUR BEFORE SURGERY; IN THE PICU 10 MG 8-HOURLY
     Route: 064
  9. DEXMEDETOMIDINE. [Suspect]
     Active Substance: DEXMEDETOMIDINE
     Dosage: IN PICU CONTINUALLY INFUSED RANGING 0.2 TO 0.5MICG/KG/H
     Route: 064

REACTIONS (2)
  - Small for dates baby [Recovered/Resolved]
  - Foetal exposure during delivery [Recovered/Resolved]
